FAERS Safety Report 25493830 (Version 1)
Quarter: 2025Q2

REPORT INFORMATION
  Report Type: Spontaneous
  Country: IN (occurrence: IN)
  Receive Date: 20250630
  Receipt Date: 20250630
  Transmission Date: 20250717
  Serious: Yes (Hospitalization, Other)
  Sender: INVENTIA HEALTHCARE PRIVATE LIMITED
  Company Number: IN-Inventia-000820

PATIENT
  Age: 96 Year
  Sex: Male

DRUGS (15)
  1. DULOXETINE [Interacting]
     Active Substance: DULOXETINE
     Indication: Feeling cold
     Dates: start: 202308, end: 202404
  2. PREGABALIN [Interacting]
     Active Substance: PREGABALIN
     Indication: Pain in extremity
     Dates: start: 2009, end: 202404
  3. QUETIAPINE [Concomitant]
     Active Substance: QUETIAPINE
     Dates: start: 202311, end: 202404
  4. MEMANTINE [Concomitant]
     Active Substance: MEMANTINE
     Dates: start: 202311, end: 202404
  5. RIVASTIGMINE [Concomitant]
     Active Substance: RIVASTIGMINE
  6. DONEPEZIL [Concomitant]
     Active Substance: DONEPEZIL
     Dates: start: 202311, end: 202404
  7. TRIHEXYPHENIDYL [Concomitant]
     Active Substance: TRIHEXYPHENIDYL
     Dates: start: 202311, end: 202404
  8. RASAGILINE [Concomitant]
     Active Substance: RASAGILINE
     Dates: start: 202311, end: 202404
  9. REBAMIPIDE [Concomitant]
     Active Substance: REBAMIPIDE
  10. MELATONIN [Concomitant]
     Active Substance: MELATONIN
     Dates: start: 202311, end: 202404
  11. RABEPRAZOLE [Concomitant]
     Active Substance: RABEPRAZOLE
     Dates: end: 202404
  12. ASPIRIN [Concomitant]
     Active Substance: ASPIRIN
     Dates: end: 202404
  13. AMANTADINE [Concomitant]
     Active Substance: AMANTADINE
     Dates: start: 202311
  14. ARIPIPRAZOLE [Concomitant]
     Active Substance: ARIPIPRAZOLE
     Dates: start: 202311
  15. ARMODAFINIL [Concomitant]
     Active Substance: ARMODAFINIL

REACTIONS (8)
  - Neuropsychological symptoms [Recovering/Resolving]
  - Hallucination, visual [Recovering/Resolving]
  - Logorrhoea [Recovering/Resolving]
  - Insomnia [Recovering/Resolving]
  - Drug interaction [Unknown]
  - Delirium [Recovering/Resolving]
  - Disorientation [Recovering/Resolving]
  - Aphthous ulcer [Recovering/Resolving]
